FAERS Safety Report 6062265-2 (Version None)
Quarter: 2009Q1

REPORT INFORMATION
  Report Type: 
  Country: None (occurrence: None)
  Receive Date: 20090203
  Receipt Date: 20090127
  Transmission Date: 20090719
  Serious: Yes (Hospitalization)
  Sender: FDA-Public Use
  Company Number: US-ASTRAZENECA-2009UW02413

PATIENT
  Age: 51 Year
  Sex: Male

DRUGS (2)
  1. NEXIUM [Suspect]
     Route: 048
     Dates: start: 20080618
  2. RADIATION [Concomitant]

REACTIONS (3)
  - DYSPEPSIA [None]
  - LUNG CANCER METASTATIC [None]
  - SYNCOPE [None]
